FAERS Safety Report 12691141 (Version 1)
Quarter: 2016Q3

REPORT INFORMATION
  Report Type: Spontaneous
  Country: US (occurrence: US)
  Receive Date: 20160826
  Receipt Date: 20160826
  Transmission Date: 20161109
  Serious: Yes (Hospitalization, Other)
  Sender: FDA-Public Use
  Company Number: US-SAOL THERAPEUTICS-2016SAO00341

PATIENT
  Age: 57 Year
  Sex: Female
  Weight: 77.6 kg

DRUGS (21)
  1. MIRTAZAPINE. [Concomitant]
     Active Substance: MIRTAZAPINE
     Dosage: 30 MG, 1X/DAY
  2. OMEPRAZOLE. [Concomitant]
     Active Substance: OMEPRAZOLE
     Dosage: 40 MG, 1X/DAY
  3. FIORINAL [Concomitant]
     Active Substance: ASPIRIN\BUTALBITAL\CAFFEINE
  4. ALBUTEROL INHL [Concomitant]
     Dosage: UNK, AS NEEDED
  5. FENTANYL. [Concomitant]
     Active Substance: FENTANYL
     Dosage: 75 ?G, EVERY 72 HOURS
  6. NUCYNTA [Concomitant]
     Active Substance: TAPENTADOL HYDROCHLORIDE
     Dosage: 50 MG, 4X/DAY
  7. BACLOFEN. [Suspect]
     Active Substance: BACLOFEN
     Indication: MUSCLE SPASTICITY
     Dosage: 250.3 ?G, \DAY
     Route: 037
     Dates: start: 20160722, end: 20160724
  8. BACLOFEN. [Suspect]
     Active Substance: BACLOFEN
     Indication: MUSCLE SPASTICITY
     Dosage: 250.3 ?G, \DAY
     Dates: end: 20160722
  9. COLESTIPOL [Concomitant]
     Active Substance: COLESTIPOL
     Dosage: 1 TABLETS, 1X/DAY
     Route: 048
  10. VERAPAMIL [Concomitant]
     Active Substance: VERAPAMIL HYDROCHLORIDE
     Dosage: 80 MG, 3X/DAY
  11. ZOFRAN ODT ORAL [Concomitant]
     Dosage: UNK, AS NEEDED
     Route: 048
  12. BACLOFEN. [Concomitant]
     Active Substance: BACLOFEN
     Dosage: 30 MG, 4X/DAY
     Route: 048
  13. CLONIDINE. [Concomitant]
     Active Substance: CLONIDINE
     Dosage: 0.2 MG, 1X/DAY
  14. ZOLPIDEM [Concomitant]
     Active Substance: ZOLPIDEM\ZOLPIDEM TARTRATE
     Dosage: 5 MG, 1X/DAY
     Route: 048
  15. COLACE [Concomitant]
     Active Substance: DOCUSATE SODIUM
     Dosage: UNK, UP TO 4X/DAY
  16. TIZANIDINE. [Concomitant]
     Active Substance: TIZANIDINE
     Dosage: 4 MG, 3X/DAY
     Route: 048
  17. IBUPROFEN. [Concomitant]
     Active Substance: IBUPROFEN
     Dosage: 800 MG, AS NEEDED
  18. UNSPECIFIED STOOL SOFTENER [Concomitant]
     Dosage: UNK, AS NEEDED
     Route: 048
  19. BACLOFEN. [Suspect]
     Active Substance: BACLOFEN
     Dosage: 250.3 ?G/ML, \DAY
     Route: 037
     Dates: start: 20160725
  20. VITAMIN D3 [Concomitant]
     Active Substance: CHOLECALCIFEROL
     Dosage: 1000 U, 1X/DAY
     Route: 048
  21. LORAZEPAM. [Concomitant]
     Active Substance: LORAZEPAM
     Dosage: 2 MG, 1X/DAY

REACTIONS (22)
  - Acute respiratory failure [Recovered/Resolved]
  - Nausea [Unknown]
  - Pain [Unknown]
  - Chest X-ray abnormal [Unknown]
  - Toxic encephalopathy [Recovered/Resolved]
  - Diarrhoea [Unknown]
  - Lethargy [Unknown]
  - Respiratory distress [Recovered/Resolved]
  - Somnolence [Recovered/Resolved]
  - Popliteal pulse decreased [Unknown]
  - Depressed level of consciousness [Recovered/Resolved]
  - Overdose [Recovered/Resolved]
  - Retching [Unknown]
  - Incorrect drug administration rate [Recovered/Resolved]
  - Bradycardia [Recovering/Resolving]
  - Vomiting [Unknown]
  - Myelopathy [Unknown]
  - Feeding tube user [Unknown]
  - Leukocytosis [Recovering/Resolving]
  - Fall [Unknown]
  - Headache [Unknown]
  - Pedal pulse decreased [Unknown]

NARRATIVE: CASE EVENT DATE: 20160722
